FAERS Safety Report 12808910 (Version 3)
Quarter: 2016Q4

REPORT INFORMATION
  Report Type: Spontaneous
  Country: US (occurrence: US)
  Receive Date: 20161004
  Receipt Date: 20161026
  Transmission Date: 20170207
  Serious: Yes (Hospitalization, Other)
  Sender: FDA-Public Use
  Company Number: US-ALEXION PHARMACEUTICALS INC.-A201607398

PATIENT
  Sex: Male

DRUGS (2)
  1. SOLIRIS [Suspect]
     Active Substance: ECULIZUMAB
     Indication: HAEMOLYTIC URAEMIC SYNDROME
     Dosage: UNK
     Route: 042
  2. LUPRON [Concomitant]
     Active Substance: LEUPROLIDE ACETATE
     Indication: PROSTATE CANCER
     Dosage: UNK, Q3MONTH
     Route: 065

REACTIONS (5)
  - Chills [Unknown]
  - Oedema peripheral [Not Recovered/Not Resolved]
  - Pyrexia [Unknown]
  - Myalgia [Unknown]
  - Meningitis meningococcal [Not Recovered/Not Resolved]

NARRATIVE: CASE EVENT DATE: 20160926
